FAERS Safety Report 22247746 (Version 1)
Quarter: 2023Q2

REPORT INFORMATION
  Report Type: Spontaneous
  Country: GB (occurrence: GB)
  Receive Date: 20230425
  Receipt Date: 20230425
  Transmission Date: 20230721
  Serious: Yes (Disabling)
  Sender: FDA-Public Use
  Company Number: None

PATIENT
  Age: 39 Year
  Sex: Female

DRUGS (4)
  1. PROTOPIC [Suspect]
     Active Substance: TACROLIMUS
     Indication: Product used for unknown indication
     Dosage: COVERED MY WHOLE BODY EVERY DAY AND THEN TWICE A WEEK FOR OVER YEARS MONTHS
     Route: 003
  2. PROTOPIC [Suspect]
     Active Substance: TACROLIMUS
     Indication: Product used for unknown indication
     Dosage: COVERED MY WHOLE BODY EVERY DAY AND THEN TWICE A WEEK FOR OVER YEARS MONTHS
     Route: 003
  3. PROTOPIC [Suspect]
     Active Substance: TACROLIMUS
     Indication: Product used for unknown indication
     Dosage: COVERED MY WHOLE BODY EVERY DAY AND THEN TWICE A WEEK FOR OVER YEARS MONTHS
     Route: 003
  4. PROTOPIC [Suspect]
     Active Substance: TACROLIMUS
     Indication: Product used for unknown indication
     Dosage: COVERED MY WHOLE BODY EVERY DAY AND THEN TWICE A WEEK FOR OVER YEARS MONTHS
     Route: 003

REACTIONS (12)
  - Insomnia [Recovering/Resolving]
  - Dry skin [Not Recovered/Not Resolved]
  - Erythema [Recovered/Resolved]
  - Hyperhidrosis [Recovering/Resolving]
  - Skin erosion [Not Recovered/Not Resolved]
  - Skin exfoliation [Not Recovered/Not Resolved]
  - Skin exfoliation [Recovering/Resolving]
  - Skin burning sensation [Recovered/Resolved]
  - Pain of skin [Not Recovered/Not Resolved]
  - Miliaria [Recovering/Resolving]
  - Chills [Recovering/Resolving]
  - Skin weeping [Recovering/Resolving]
